FAERS Safety Report 20127229 (Version 1)
Quarter: 2021Q4

REPORT INFORMATION
  Report Type: Spontaneous
  Country: AU (occurrence: AU)
  Receive Date: 20211129
  Receipt Date: 20211129
  Transmission Date: 20220303
  Serious: Yes (Other)
  Sender: FDA-Public Use
  Company Number: AU-SA-2020SA103063

PATIENT
  Age: 55 Year
  Sex: Female

DRUGS (1)
  1. ZOLPIDEM [Suspect]
     Active Substance: ZOLPIDEM TARTRATE

REACTIONS (5)
  - Cardiac flutter [Unknown]
  - Rhinorrhoea [Unknown]
  - Dyspepsia [Unknown]
  - Anxiety [Unknown]
  - Product use issue [Unknown]
